FAERS Safety Report 16749504 (Version 1)
Quarter: 2019Q3

REPORT INFORMATION
  Report Type: Spontaneous
  Country: CN (occurrence: CN)
  Receive Date: 20190828
  Receipt Date: 20190828
  Transmission Date: 20191005
  Serious: Yes (Hospitalization, Other)
  Sender: FDA-Public Use
  Company Number: CN-PFIZER INC-2019361767

PATIENT
  Age: 94 Year
  Sex: Male

DRUGS (1)
  1. XALKORI [Suspect]
     Active Substance: CRIZOTINIB
     Indication: LUNG NEOPLASM MALIGNANT
     Dosage: 250 MG, 2X/DAY
     Route: 048
     Dates: start: 201805

REACTIONS (5)
  - Infection [Unknown]
  - Pneumonia viral [Unknown]
  - Interstitial lung disease [Unknown]
  - Viral infection [Unknown]
  - Pyrexia [Recovered/Resolved]
